FAERS Safety Report 8009215-7 (Version None)
Quarter: 2011Q4

REPORT INFORMATION
  Report Type: 
  Country: None (occurrence: None)
  Receive Date: 20111227
  Receipt Date: 20111219
  Transmission Date: 20120403
  Serious: Yes (Hospitalization, Other)
  Sender: FDA-Public Use
  Company Number: US-ASTRAZENECA-2009SE14153

PATIENT
  Age: 64 Year
  Sex: Female
  Weight: 49.9 kg

DRUGS (11)
  1. LEDETRIACATAM [Concomitant]
     Indication: CONVULSION
  2. SEROQUEL [Suspect]
     Indication: BIPOLAR DISORDER
     Route: 048
  3. XANAX [Concomitant]
     Indication: ANXIETY
  4. SEROQUEL [Suspect]
     Indication: SLEEP DISORDER
     Route: 048
  5. SEROQUEL [Suspect]
     Indication: BIPOLAR I DISORDER
     Route: 048
  6. SEROQUEL [Suspect]
     Route: 048
  7. SEROQUEL [Suspect]
     Route: 048
  8. PARICADIN [Concomitant]
     Indication: APPETITE DISORDER
  9. LEXAPRO [Concomitant]
     Indication: ANTIDEPRESSANT THERAPY
  10. SEROQUEL [Suspect]
     Route: 048
  11. POSTASSIUM [Concomitant]
     Indication: BLOOD POTASSIUM DECREASED

REACTIONS (11)
  - CONVULSION [None]
  - FOOT FRACTURE [None]
  - FEAR [None]
  - DRUG DOSE OMISSION [None]
  - UPPER LIMB FRACTURE [None]
  - INSOMNIA [None]
  - PANIC ATTACK [None]
  - ANXIETY [None]
  - AGGRESSION [None]
  - OFF LABEL USE [None]
  - SPEECH DISORDER [None]
